FAERS Safety Report 23768387 (Version 1)
Quarter: 2024Q2

REPORT INFORMATION
  Report Type: Spontaneous
  Country: US (occurrence: US)
  Receive Date: 20240422
  Receipt Date: 20240422
  Transmission Date: 20240716
  Serious: No
  Sender: FDA-Public Use
  Company Number: US-MELINTA THERAPEUTICS, LLC-US-MLNT-23-00249

PATIENT
  Sex: Female

DRUGS (2)
  1. METOPROLOL SUCCINATE [Suspect]
     Active Substance: METOPROLOL SUCCINATE
     Indication: Product used for unknown indication
     Dosage: NOT PROVIDED.
     Route: 065
  2. FASENRA [Concomitant]
     Active Substance: BENRALIZUMAB
     Indication: Asthma
     Dosage: 30 MILLIGRAM, 4W
     Route: 058

REACTIONS (1)
  - Drug hypersensitivity [Unknown]
